FAERS Safety Report 6852349-0 (Version None)
Quarter: 2010Q3

REPORT INFORMATION
  Report Type: 
  Country: None (occurrence: None)
  Receive Date: 20100717
  Receipt Date: 20071112
  Transmission Date: 20110219
  Serious: No
  Sender: FDA-Public Use
  Company Number: US-PFIZER INC-2007096648

PATIENT
  Sex: Male
  Weight: 79.4 kg

DRUGS (2)
  1. CHANTIX [Suspect]
     Indication: SMOKING CESSATION THERAPY
     Route: 048
     Dates: start: 20071109, end: 20071111
  2. NEXIUM [Concomitant]

REACTIONS (6)
  - DISTURBANCE IN ATTENTION [None]
  - DYSGEUSIA [None]
  - FEELING ABNORMAL [None]
  - FEELING JITTERY [None]
  - TACHYPHRENIA [None]
  - TREMOR [None]
